FAERS Safety Report 6723523-9 (Version None)
Quarter: 2010Q2

REPORT INFORMATION
  Report Type: 
  Country: None (occurrence: None)
  Receive Date: 20100513
  Receipt Date: 20100506
  Transmission Date: 20101027
  Serious: Yes (Other)
  Sender: FDA-Public Use
  Company Number: CA-ASTRAZENECA-2010SE20855

PATIENT
  Age: 56 Year
  Sex: Female
  Weight: 73 kg

DRUGS (11)
  1. ARIMIDEX [Suspect]
     Route: 048
  2. ADRIAMYCIN PFS [Concomitant]
     Route: 042
  3. CALCIUM [Concomitant]
     Route: 048
  4. DEXAMETHASONE [Concomitant]
  5. EURO D [Concomitant]
  6. LIPITOR [Concomitant]
     Route: 048
  7. PROCYTOX [Concomitant]
     Route: 042
  8. RADIOTHERAPIE [Concomitant]
  9. STEMETIL [Concomitant]
  10. SYNTHROID [Concomitant]
  11. TAXOTERE [Concomitant]
     Route: 042

REACTIONS (2)
  - BLOOD CREATINE INCREASED [None]
  - BLOOD URIC ACID INCREASED [None]
